FAERS Safety Report 17318581 (Version 1)
Quarter: 2020Q1

REPORT INFORMATION
  Report Type: Report from Study
  Country: FR (occurrence: FR)
  Receive Date: 20200124
  Receipt Date: 20200124
  Transmission Date: 20200409
  Serious: Yes (Other)
  Sender: FDA-Public Use
  Company Number: FR-ALNYLAM PHARMACEUTICALS, INC.-ALN-2020-000070

PATIENT
  Age: 70 Year
  Sex: Female

DRUGS (2)
  1. ONPATTRO [Suspect]
     Active Substance: PATISIRAN SODIUM
     Indication: HEREDITARY NEUROPATHIC AMYLOIDOSIS
     Dosage: UNK
     Route: 042
  2. COD LIVER OIL [Concomitant]
     Active Substance: COD LIVER OIL
     Indication: SUPPLEMENTATION THERAPY
     Dosage: UNK
     Route: 048

REACTIONS (9)
  - Gait disturbance [Unknown]
  - Unevaluable event [Unknown]
  - Dyspnoea exertional [Unknown]
  - Discharge [Unknown]
  - Fatigue [Unknown]
  - Paraesthesia [Unknown]
  - Blindness [Unknown]
  - Pain in extremity [Unknown]
  - Discomfort [Unknown]
